FAERS Safety Report 4587388-6 (Version None)
Quarter: 2005Q1

REPORT INFORMATION
  Report Type: 
  Country: None (occurrence: None)
  Receive Date: 20050215
  Receipt Date: 20050202
  Transmission Date: 20050727
  Serious: Yes (Hospitalization)
  Sender: FDA-Public Use
  Company Number: 2005017707

PATIENT
  Age: 45 Year
  Sex: Female

DRUGS (7)
  1. CARDENALIN           (DOXAZOSIN) [Suspect]
     Indication: ILL-DEFINED DISORDER
     Dosage: 4 MG ORAL
     Route: 048
     Dates: start: 20041223
  2. AMOXICILLIN [Suspect]
     Indication: NASOPHARYNGITIS
     Dosage: 3 TABLETS ORAL
     Route: 048
     Dates: start: 20050111
  3. CARBOCISTEINE          (CARBOCISTEINE) [Suspect]
     Indication: NASOPHARYNGITIS
     Dosage: 3 TABLETS ORAL
     Route: 048
     Dates: start: 20050111
  4. ANTIOBIOTICS       (ANTIBIOTICS) [Suspect]
     Indication: NASOPHARYNGITIS
     Dosage: ORAL
     Route: 048
     Dates: start: 20050111
  5. ALACEPRIL [Concomitant]
  6. NITRENDIPINE [Concomitant]
  7. ANALGESICS [Concomitant]

REACTIONS (6)
  - DIALYSIS [None]
  - MYOCARDIAL INFARCTION [None]
  - NASOPHARYNGITIS [None]
  - RENAL FAILURE [None]
  - RHABDOMYOLYSIS [None]
  - URINE OUTPUT DECREASED [None]
